FAERS Safety Report 14614464 (Version 2)
Quarter: 2018Q2

REPORT INFORMATION
  Report Type: Spontaneous
  Country: US (occurrence: US)
  Receive Date: 20180308
  Receipt Date: 20180508
  Transmission Date: 20180711
  Serious: No
  Sender: FDA-Public Use
  Company Number: US-CELLTRION INC.-2017US010780

PATIENT

DRUGS (3)
  1. INFLECTRA [Suspect]
     Active Substance: INFLIXIMAB-DYYB
     Dosage: UNK
     Route: 065
     Dates: start: 20170907, end: 20170907
  2. INFLECTRA [Suspect]
     Active Substance: INFLIXIMAB-DYYB
     Indication: COLITIS ULCERATIVE
     Dosage: 5 MG/KG, CYCLIC (Q8 WEEKS BUT INFUSE ON 0, 2, AND 6 WEEKS PRIOR)
     Route: 065
  3. INFLECTRA [Suspect]
     Active Substance: INFLIXIMAB-DYYB
     Dosage: 5 MG/KG, CYCLIC ((5 MG/KG AT 0, 2, 6 AND THEN 8 WEEKS)
     Route: 065
     Dates: start: 20171205, end: 20171205

REACTIONS (2)
  - Drug prescribing error [Unknown]
  - Prescribed overdose [Unknown]
